APPROVED DRUG PRODUCT: TRIBENZOR
Active Ingredient: AMLODIPINE BESYLATE; HYDROCHLOROTHIAZIDE; OLMESARTAN MEDOXOMIL
Strength: EQ 5MG BASE;12.5MG;20MG
Dosage Form/Route: TABLET;ORAL
Application: N200175 | Product #001 | TE Code: AB
Applicant: COSETTE PHARMACEUTICALS INC
Approved: Jul 23, 2010 | RLD: Yes | RS: No | Type: RX